FAERS Safety Report 4849238-X (Version None)
Quarter: 2005Q4

REPORT INFORMATION
  Report Type: 
  Country: None (occurrence: None)
  Receive Date: 20051209
  Receipt Date: 20050926
  Transmission Date: 20060501
  Serious: Yes (Disabling)
  Sender: FDA-Public Use
  Company Number: US-MERCK-0509USA03846

PATIENT
  Age: 64 Year
  Sex: Female
  Weight: 79 kg

DRUGS (9)
  1. FOSAMAX [Suspect]
     Indication: OSTEOPOROSIS
     Route: 048
     Dates: start: 20040818
  2. CALCIUM (UNSPECIFIED) [Concomitant]
     Route: 065
  3. LOPRESSOR [Concomitant]
     Indication: CORONARY ARTERY DISEASE
     Route: 065
  4. LIPITOR [Concomitant]
     Route: 065
  5. ZETIA [Concomitant]
     Route: 048
  6. ALTACE [Concomitant]
     Route: 065
  7. FOLGARD [Concomitant]
     Indication: VITAMIN SUPPLEMENTATION
     Route: 065
  8. PRAVACHOL [Concomitant]
     Indication: HYPERLIPIDAEMIA
     Route: 065
  9. FLONASE [Concomitant]
     Indication: RHINITIS ALLERGIC
     Route: 065

REACTIONS (4)
  - COUGH [None]
  - DRUG INEFFECTIVE [None]
  - FRACTURED SACRUM [None]
  - VIRAL INFECTION [None]
